FAERS Safety Report 10651499 (Version 3)
Quarter: 2015Q1

REPORT INFORMATION
  Report Type: Report from Study
  Country: IL (occurrence: IL)
  Receive Date: 20141215
  Receipt Date: 20150302
  Transmission Date: 20150720
  Serious: Yes (Death, Hospitalization)
  Sender: FDA-Public Use
  Company Number: IL-009507513-1408ISR003759

PATIENT
  Age: 84 Year
  Sex: Female
  Weight: 68 kg

DRUGS (25)
  1. PEMBROLIZUMAB. [Suspect]
     Active Substance: PEMBROLIZUMAB
     Dosage: UNK, Q3W
     Dates: start: 20140713, end: 20140713
  2. ALPRAZOLAM. [Concomitant]
     Active Substance: ALPRAZOLAM
     Indication: DEPRESSION
     Dosage: 0.25 MG, BID, FORMULATION: PILL
     Route: 048
     Dates: start: 200904
  3. CLONAZEPAM. [Concomitant]
     Active Substance: CLONAZEPAM
     Indication: DEPRESSION
     Dosage: 2 MG, QD, FORMULATION: PILL
     Route: 048
     Dates: start: 200904
  4. MELATONIN [Concomitant]
     Active Substance: MELATONIN
     Indication: INSOMNIA
     Dosage: 2 MG, QD
     Route: 048
     Dates: start: 20140329
  5. FUROSEMIDE. [Concomitant]
     Active Substance: FUROSEMIDE
     Indication: CHRONIC OBSTRUCTIVE PULMONARY DISEASE
     Dosage: 30 MG, BID
     Route: 048
     Dates: start: 20140329
  6. LOSARTAN POTASSIUM. [Concomitant]
     Active Substance: LOSARTAN POTASSIUM
     Indication: HYPERTENSION
     Dosage: 50 MG, QD, FORMULATION: PILL
     Route: 048
     Dates: start: 200707
  7. EZETROL 10MG TABLETS [Concomitant]
     Active Substance: EZETIMIBE
     Indication: HYPERLIPIDAEMIA
     Dosage: 10 MG, QD
     Route: 048
     Dates: start: 200409
  8. OSELTAMIVIR PHOSPHATE [Concomitant]
     Active Substance: OSELTAMIVIR PHOSPHATE
     Indication: CHRONIC OBSTRUCTIVE PULMONARY DISEASE
     Dosage: 75 MG, BID
     Route: 048
     Dates: start: 20140405
  9. ZOLEDRONIC ACID [Concomitant]
     Active Substance: ZOLEDRONIC ACID
     Indication: OSTEOPOROSIS
     Dosage: FREQUENCY: OTHER
     Route: 058
     Dates: start: 20130311
  10. VITAMIN D [Concomitant]
     Active Substance: CHOLECALCIFEROL
     Indication: OSTEOPOROSIS
     Dosage: 10 ML, QD
     Route: 048
     Dates: start: 201209
  11. ELATROL [Concomitant]
     Indication: ANTIDEPRESSANT THERAPY
     Dosage: 25 MG, QD, FORMULATION: PILL
     Route: 048
     Dates: start: 20121105
  12. BODY WISE GLUCOMINE [Concomitant]
     Indication: DIABETES MELLITUS
     Dosage: 850 MG, QD, FORMULATION: PILL
     Route: 048
     Dates: start: 201102
  13. PREDNISONE. [Concomitant]
     Active Substance: PREDNISONE
     Indication: POLYMYALGIA RHEUMATICA
     Dosage: 10 MG, QD
     Route: 048
     Dates: start: 20140529
  14. PEMBROLIZUMAB. [Suspect]
     Active Substance: PEMBROLIZUMAB
     Indication: MALIGNANT MELANOMA
     Dosage: UNK, Q3W
     Route: 042
     Dates: start: 20130505, end: 20140622
  15. ROWATINEX [Concomitant]
     Active Substance: HERBALS
     Indication: URINARY INCONTINENCE
     Dosage: 25 MG, BID, FORMULATION: PILL
     Route: 048
     Dates: start: 200904
  16. REPAGLINIDE. [Concomitant]
     Active Substance: REPAGLINIDE
     Indication: DIABETES MELLITUS
     Dosage: 0.5 MG, QD
     Route: 048
     Dates: start: 20121105
  17. VITAMINS (UNSPECIFIED) [Concomitant]
     Active Substance: VITAMINS
     Indication: VITAMIN SUPPLEMENTATION
     Dosage: UNK, FREQUENCY OTHER
     Route: 048
     Dates: start: 200301
  18. CYANOCOBALAMIN. [Concomitant]
     Active Substance: CYANOCOBALAMIN
     Indication: VITAMIN SUPPLEMENTATION
     Dosage: FREQUENCY : OTHER, TOTAL DAILY DOSE: 250 MG
     Route: 048
     Dates: start: 200301
  19. LANTON [Concomitant]
     Indication: DYSPEPSIA
     Dosage: 15 MG, QD, FORMULATION: PILL
     Route: 048
     Dates: start: 199301
  20. FUROSEMIDE. [Concomitant]
     Active Substance: FUROSEMIDE
     Indication: HYPERTENSION
  21. CALCIUM (UNSPECIFIED) (+) VITAMIN D (UNSPECIFIED) [Concomitant]
     Active Substance: CALCIUM CARBONATE\VITAMIN D
     Indication: OSTEOPOROSIS
     Dosage: 60 MG, QD
     Route: 048
     Dates: start: 200409
  22. NORMALOL [Concomitant]
     Active Substance: ATENOLOL
     Indication: HYPERTENSION
     Dosage: 25 MG, BID, FORMULATION: PILL
     Route: 048
     Dates: start: 200707
  23. CRANBERRY. [Concomitant]
     Active Substance: CRANBERRY
     Indication: PROPHYLAXIS URINARY TRACT INFECTION
     Dosage: UNK, QD
     Route: 048
     Dates: start: 200904
  24. CRESTOR [Concomitant]
     Active Substance: ROSUVASTATIN CALCIUM
     Indication: HYPERLIPIDAEMIA
     Dosage: 5 MG, QD
     Route: 048
     Dates: start: 20140403
  25. TRIBEMIN [Concomitant]
     Indication: VITAMIN SUPPLEMENTATION
     Dosage: 600 MG, QD
     Route: 048
     Dates: start: 20140405

REACTIONS (2)
  - Traumatic intracranial haemorrhage [Fatal]
  - Urinary tract infection [Recovered/Resolved]

NARRATIVE: CASE EVENT DATE: 20140729
